FAERS Safety Report 10364869 (Version 1)
Quarter: 2014Q3

REPORT INFORMATION
  Report Type: Spontaneous
  Country: BR (occurrence: BR)
  Receive Date: 20140806
  Receipt Date: 20140806
  Transmission Date: 20150326
  Serious: Yes (Death, Hospitalization)
  Sender: FDA-Public Use
  Company Number: PHHY2014BR094450

PATIENT
  Age: 67 Year
  Sex: Female

DRUGS (3)
  1. PREDNISONE. [Suspect]
     Active Substance: PREDNISONE
     Dosage: 20 MG, DAILY
  2. TACROLIMUS. [Suspect]
     Active Substance: TACROLIMUS
     Dosage: 1 MG, DAILY
  3. MYCOPHENOLIC ACID [Suspect]
     Active Substance: MYCOPHENOLIC ACID
     Dosage: 360 MG, DAILY

REACTIONS (13)
  - Nasal obstruction [Recovering/Resolving]
  - Erythema [Recovering/Resolving]
  - Thrombophlebitis superficial [Unknown]
  - Septic shock [Fatal]
  - Skin lesion [Recovering/Resolving]
  - Bacterial sepsis [Fatal]
  - Rhinorrhoea [Recovering/Resolving]
  - Localised oedema [Recovering/Resolving]
  - Pneumonia [Fatal]
  - Purulent discharge [Unknown]
  - Mucocutaneous leishmaniasis [Recovering/Resolving]
  - Sinusitis [Recovering/Resolving]
  - Oedema mucosal [Recovering/Resolving]
